FAERS Safety Report 7445818-6 (Version None)
Quarter: 2011Q2

REPORT INFORMATION
  Report Type: 
  Country: None (occurrence: None)
  Receive Date: 20110429
  Receipt Date: 20110421
  Transmission Date: 20111010
  Serious: Yes (Other)
  Sender: FDA-Public Use
  Company Number: PHHY2011US00668

PATIENT
  Sex: Female

DRUGS (10)
  1. VITAMIN C [Concomitant]
     Dosage: 500 MG, QD
  2. FERRIC SULFIDE [Concomitant]
     Dosage: UNK, TID
  3. AMLODIPINE [Suspect]
     Dosage: 5 MG, QD
     Route: 048
  4. TUMS [Concomitant]
     Dosage: UNK
  5. GILENYA [Suspect]
     Indication: MULTIPLE SCLEROSIS
     Dosage: 0.5 MG, QD
     Route: 048
     Dates: start: 20110103
  6. LISINOPRIL AND HYDROCHLOROTHIAZIDE [Concomitant]
     Dosage: 10/12.5 MG BID
  7. ASPIRIN [Concomitant]
     Dosage: 2 DF, UNK
  8. AMLODIPINE [Suspect]
     Dosage: 10 MG, QD
     Route: 048
  9. MOTRIN [Concomitant]
     Dosage: UNK, BID
  10. OMEPRAZOLE [Concomitant]
     Dosage: 40 MG, QD

REACTIONS (6)
  - JOINT SPRAIN [None]
  - FALL [None]
  - JOINT INJURY [None]
  - CHILLS [None]
  - PARAESTHESIA [None]
  - HEART RATE DECREASED [None]
